FAERS Safety Report 22390058 (Version 1)
Quarter: 2023Q2

REPORT INFORMATION
  Report Type: Spontaneous
  Country: CN (occurrence: None)
  Receive Date: 20230531
  Receipt Date: 20230531
  Transmission Date: 20230721
  Serious: Yes (Life-Threatening, Hospitalization, Other)
  Sender: FDA-Public Use
  Company Number: 2023A124729

PATIENT
  Age: 15338 Day
  Sex: Female
  Weight: 58 kg

DRUGS (5)
  1. DAPAGLIFLOZIN [Suspect]
     Active Substance: DAPAGLIFLOZIN
     Indication: Diabetes mellitus
     Route: 048
     Dates: start: 20230511, end: 20230523
  2. CEFTIZOXIME [Concomitant]
     Active Substance: CEFTIZOXIME
     Indication: Respiratory tract infection
  3. IMIPENEM [Concomitant]
     Active Substance: IMIPENEM
     Indication: Respiratory tract infection
  4. CILASTATIN [Concomitant]
     Active Substance: CILASTATIN
     Indication: Respiratory tract infection
  5. MOXIFLOXACIN [Concomitant]
     Active Substance: MOXIFLOXACIN
     Indication: Respiratory tract infection

REACTIONS (10)
  - Hypersensitivity [Not Recovered/Not Resolved]
  - Metabolic acidosis [Not Recovered/Not Resolved]
  - Respiratory alkalosis [Unknown]
  - Interstitial lung disease [Unknown]
  - Respiratory failure [Unknown]
  - Hypokalaemia [Unknown]
  - Hyponatraemia [Unknown]
  - Diabetes insipidus [Unknown]
  - Pleural effusion [Unknown]
  - Diabetic ketoacidosis [Not Recovered/Not Resolved]

NARRATIVE: CASE EVENT DATE: 20230518
